FAERS Safety Report 4312499-X (Version None)
Quarter: 2004Q1

REPORT INFORMATION
  Report Type: 
  Country: None (occurrence: None)
  Receive Date: 20040303
  Receipt Date: 20040216
  Transmission Date: 20041129
  Serious: Yes (Death, Hospitalization)
  Sender: FDA-Public Use
  Company Number: 2004EU000355

PATIENT
  Age: 30 Year
  Sex: Male

DRUGS (2)
  1. PROGRAF [Suspect]
     Indication: LIVER TRANSPLANT
     Dosage: UNK, UNKNOWN/D, UNK
  2. COSTICOSTEROIDS [Concomitant]

REACTIONS (7)
  - COMPLICATIONS OF TRANSPLANT SURGERY [None]
  - CYTOMEGALOVIRUS VIRAEMIA [None]
  - HEPATITIS [None]
  - HERPES VIRUS INFECTION [None]
  - KAPOSI'S SARCOMA [None]
  - MULTI-ORGAN FAILURE [None]
  - SEPTIC SHOCK [None]
